FAERS Safety Report 20127807 (Version 1)
Quarter: 2021Q4

REPORT INFORMATION
  Report Type: Spontaneous
  Country: AU (occurrence: AU)
  Receive Date: 20211129
  Receipt Date: 20211129
  Transmission Date: 20220303
  Serious: Yes (Other)
  Sender: FDA-Public Use
  Company Number: AU-PFIZER INC-2021471328

PATIENT
  Age: 86 Year
  Sex: Male

DRUGS (4)
  1. FILGRASTIM [Suspect]
     Active Substance: FILGRASTIM
     Dosage: UNK
     Dates: start: 20210419, end: 20210420
  2. FILGRASTIM [Suspect]
     Active Substance: FILGRASTIM
     Dosage: 300 MG, DAILY
     Dates: start: 20210424, end: 20210428
  3. HUMIRA [Concomitant]
     Active Substance: ADALIMUMAB
  4. ARIPIPRAZOLE [Concomitant]
     Active Substance: ARIPIPRAZOLE

REACTIONS (2)
  - Neutrophil count decreased [Unknown]
  - Drug ineffective [Unknown]

NARRATIVE: CASE EVENT DATE: 20210425
